FAERS Safety Report 10960760 (Version 1)
Quarter: 2015Q1

REPORT INFORMATION
  Report Type: Spontaneous
  Country: BR (occurrence: BR)
  Receive Date: 20150327
  Receipt Date: 20150327
  Transmission Date: 20150721
  Serious: Yes (Death, Hospitalization, Other)
  Sender: FDA-Public Use
  Company Number: BR-PFIZER INC-2012189193

PATIENT
  Age: 67 Year
  Sex: Male

DRUGS (7)
  1. XALKORI [Suspect]
     Active Substance: CRIZOTINIB
     Dosage: UNK
     Route: 048
     Dates: start: 20120620, end: 201304
  2. METICORTEN [Suspect]
     Active Substance: PREDNISONE
     Indication: PNEUMONITIS
     Dosage: UNK
     Dates: start: 2012
  3. XALKORI [Suspect]
     Active Substance: CRIZOTINIB
     Dosage: UNK
     Route: 048
     Dates: start: 201306, end: 20130830
  4. FOLIC ACID. [Concomitant]
     Active Substance: FOLIC ACID
     Dosage: UNK
  5. XALKORI [Suspect]
     Active Substance: CRIZOTINIB
     Indication: LUNG NEOPLASM MALIGNANT
     Dosage: 1 TABLET OF STRENGTH 200 MG, 2X/DAY
     Route: 048
     Dates: start: 20120321
  6. PSYLLIUM [Concomitant]
     Active Substance: PLANTAGO SEED
     Indication: CONSTIPATION
     Dosage: UNK, AS NEEDED
  7. IRON [Concomitant]
     Active Substance: IRON
     Dosage: UNK

REACTIONS (30)
  - Lung neoplasm malignant [Recovering/Resolving]
  - Cushingoid [Unknown]
  - Head injury [Unknown]
  - Multi-organ failure [Fatal]
  - Pneumonitis [Recovered/Resolved]
  - Encephalitis [Unknown]
  - Ulcer haemorrhage [Unknown]
  - Hypotension [Not Recovered/Not Resolved]
  - Vomiting [Unknown]
  - Pyrexia [Not Recovered/Not Resolved]
  - Hypotension [Unknown]
  - Pneumonitis [Not Recovered/Not Resolved]
  - Blood testosterone decreased [Recovering/Resolving]
  - Gangrene [Unknown]
  - Disease progression [Recovering/Resolving]
  - Constipation [Not Recovered/Not Resolved]
  - Nausea [Unknown]
  - Peripheral swelling [Not Recovered/Not Resolved]
  - Malaise [Not Recovered/Not Resolved]
  - Cardiac fibrillation [Unknown]
  - Asthenia [Not Recovered/Not Resolved]
  - Palmar-plantar erythrodysaesthesia syndrome [Not Recovered/Not Resolved]
  - Dizziness [Not Recovered/Not Resolved]
  - Wound [Unknown]
  - Coagulopathy [Unknown]
  - Senile dementia [Unknown]
  - Rhinitis [Not Recovered/Not Resolved]
  - Feeling cold [Not Recovered/Not Resolved]
  - Herpes virus infection [Not Recovered/Not Resolved]
  - Fall [Unknown]

NARRATIVE: CASE EVENT DATE: 2012
